FAERS Safety Report 6172530-6 (Version None)
Quarter: 2009Q2

REPORT INFORMATION
  Report Type: 
  Country: None (occurrence: None)
  Receive Date: 20090427
  Receipt Date: 20090413
  Transmission Date: 20091009
  Serious: Yes (Hospitalization)
  Sender: FDA-Public Use
  Company Number: 2009AL002138

PATIENT
  Age: 73 Year
  Sex: Female

DRUGS (1)
  1. DICLOXACILLIN [Suspect]
     Indication: ARTHRALGIA
     Dosage: 75 MG, QD;
     Dates: end: 20050101

REACTIONS (8)
  - AZOTAEMIA [None]
  - BACTERIA URINE [None]
  - DYSPNOEA [None]
  - HAEMODIALYSIS [None]
  - NEPHROTIC SYNDROME [None]
  - RENAL FAILURE [None]
  - RENAL TUBULAR ATROPHY [None]
  - TUBULOINTERSTITIAL NEPHRITIS [None]
